FAERS Safety Report 9620999 (Version 2)
Quarter: 2013Q4

REPORT INFORMATION
  Report Type: Spontaneous
  Country: CA (occurrence: CA)
  Receive Date: 20131015
  Receipt Date: 20131015
  Transmission Date: 20140711
  Serious: Yes (Hospitalization, Disabling)
  Sender: FDA-Public Use
  Company Number: CA-AMGEN-CANSP2013058044

PATIENT
  Age: 77 Year
  Sex: Female

DRUGS (9)
  1. ENBREL [Suspect]
     Indication: RHEUMATOID ARTHRITIS
     Dosage: 50 MG, QWK
     Route: 058
     Dates: start: 20111017
  2. ARTHROTEC [Concomitant]
     Dosage: UNK
  3. IRBESARTAN [Concomitant]
     Dosage: UNK
  4. TIAZAC                             /00489702/ [Concomitant]
     Dosage: UNK
  5. HYDROCHLOROTHIAZIDE [Concomitant]
     Dosage: UNK
  6. SYNTHROID [Concomitant]
     Dosage: UNK
  7. VITAMIN B12 [Concomitant]
     Dosage: UNK
  8. CALCIUM D                          /00944201/ [Concomitant]
     Dosage: UNK
  9. TYLENOL NO.2 [Concomitant]
     Dosage: UNK UNK, PRN

REACTIONS (5)
  - Swelling [Recovered/Resolved]
  - Secretion discharge [Recovered/Resolved]
  - Nodule [Recovered/Resolved]
  - Kidney infection [Recovered/Resolved]
  - Infection [Not Recovered/Not Resolved]
